FAERS Safety Report 19886663 (Version 1)
Quarter: 2021Q3

REPORT INFORMATION
  Report Type: Spontaneous
  Country: US (occurrence: US)
  Receive Date: 20210928
  Receipt Date: 20210928
  Transmission Date: 20211014
  Serious: No
  Sender: FDA-Public Use
  Company Number: US-BRISTOL-MYERS SQUIBB COMPANY-BMS-2021-096090

PATIENT
  Age: 57 Year
  Sex: Female
  Weight: 99 kg

DRUGS (1)
  1. KENALOG?40 [Suspect]
     Active Substance: TRIAMCINOLONE ACETONIDE
     Indication: OSTEOARTHRITIS
     Dosage: AS NEEDED
     Route: 058
     Dates: start: 202104

REACTIONS (2)
  - Menstrual disorder [Unknown]
  - Intentional product use issue [Unknown]
